FAERS Safety Report 10246286 (Version 1)
Quarter: 2014Q2

REPORT INFORMATION
  Report Type: Spontaneous
  Country: FR (occurrence: FR)
  Receive Date: 20140619
  Receipt Date: 20140619
  Transmission Date: 20141212
  Serious: Yes (Other)
  Sender: FDA-Public Use
  Company Number: FR-ROCHE-1421194

PATIENT
  Age: 55 Year
  Sex: Female

DRUGS (2)
  1. MABTHERA [Suspect]
     Indication: RHEUMATOID ARTHRITIS
     Route: 042
     Dates: start: 2008
  2. NOVATREX [Suspect]
     Indication: RHEUMATOID ARTHRITIS
     Dosage: 2.5MG, 4 TO 6 TABLETS PER WEEK
     Route: 048
     Dates: start: 2008

REACTIONS (2)
  - Cognitive disorder [Not Recovered/Not Resolved]
  - Executive dysfunction [Not Recovered/Not Resolved]
